FAERS Safety Report 21027431 (Version 1)
Quarter: 2022Q2

REPORT INFORMATION
  Report Type: Spontaneous
  Country: FR (occurrence: None)
  Receive Date: 20220630
  Receipt Date: 20220630
  Transmission Date: 20220721
  Serious: Yes (Other)
  Sender: FDA-Public Use
  Company Number: 2022A232415

PATIENT
  Sex: Male

DRUGS (132)
  1. PROPRANOLOL [Suspect]
     Active Substance: PROPRANOLOL HYDROCHLORIDE
     Dosage: 0.5-1 DOSAGE FORM IN THE MORNING
     Route: 065
     Dates: start: 20210917
  2. PROPRANOLOL [Suspect]
     Active Substance: PROPRANOLOL HYDROCHLORIDE
     Dosage: 1 TABLET IN THE MORNING
     Route: 065
     Dates: start: 20220201
  3. PROPRANOLOL [Suspect]
     Active Substance: PROPRANOLOL HYDROCHLORIDE
     Dosage: 0.5-1 DOSAGE FORM IN THE MORNING
     Route: 065
     Dates: start: 20201228
  4. ESOMEPRAZOLE [Suspect]
     Active Substance: ESOMEPRAZOLE
     Dosage: 1 CP/DIE
     Route: 065
     Dates: start: 20170104
  5. DAFALGAN [Suspect]
     Active Substance: ACETAMINOPHEN
     Dosage: 1G 3 TIMES A DAY
     Route: 065
     Dates: start: 20160818
  6. DAFALGAN [Suspect]
     Active Substance: ACETAMINOPHEN
     Dosage: 1G 3 TIMES A DAY
     Route: 065
     Dates: start: 20170529
  7. DAFALGAN [Suspect]
     Active Substance: ACETAMINOPHEN
     Dosage: 1G 3 TIMES A DAY
     Route: 065
     Dates: start: 20160704
  8. DAFALGAN [Suspect]
     Active Substance: ACETAMINOPHEN
     Dosage: 1G 3 TIMES A DAY
     Route: 065
     Dates: start: 20160722
  9. DOLIPRANE [Suspect]
     Active Substance: ACETAMINOPHEN
     Dosage: 1 G 4 TIMES A DAY. A RENOUVELER 6 MOIS
     Route: 065
     Dates: start: 20210421
  10. DOLIPRANE [Suspect]
     Active Substance: ACETAMINOPHEN
     Dosage: 1 G 6 TIMES A MONTH
     Route: 065
     Dates: start: 20200917
  11. DOLIPRANE [Suspect]
     Active Substance: ACETAMINOPHEN
     Dosage: 2 CAPSULES 4 TIMES A DAY
     Route: 065
     Dates: start: 20160622
  12. DOLIPRANE [Suspect]
     Active Substance: ACETAMINOPHEN
     Dosage: 1 GRAM 4 TIMES A DAY
     Route: 065
     Dates: start: 20200818
  13. DOLIPRANE [Suspect]
     Active Substance: ACETAMINOPHEN
     Dosage: 1 G 4 TIMES A DAY. A RENOUVELER 6 MOIS
     Route: 065
     Dates: start: 20220201
  14. DOLIPRANE [Suspect]
     Active Substance: ACETAMINOPHEN
     Dosage: 1 G 4 TIMES A DAY
     Route: 065
     Dates: start: 20201228
  15. DOLIPRANE [Suspect]
     Active Substance: ACETAMINOPHEN
     Dosage: 1 G 4 TIMES A DAY. A RENOUVELER 6 MOIS
     Route: 065
     Dates: start: 20210917
  16. ACETAMINOPHEN\BELLADONNA LEAF\CAFFEINE\OPIUM [Suspect]
     Active Substance: ACETAMINOPHEN\BELLADONNA LEAF\CAFFEINE\OPIUM
     Dosage: 4 CAPSULES/DIE
     Route: 065
     Dates: start: 20161208
  17. TOPIRAMATE [Suspect]
     Active Substance: TOPIRAMATE
     Dosage: 15 MG IN THE MORNING AND 15 MG IN THE EVENING A R 3 FOIS.
     Route: 065
     Dates: start: 20200120
  18. CYAMEMAZINE [Suspect]
     Active Substance: CYAMEMAZINE
     Dosage: 30 DROPS IN THE EVENING30.0GTT UNKNOWN
     Route: 065
     Dates: start: 20210421
  19. SULFACETAMIDE SODIUM [Suspect]
     Active Substance: SULFACETAMIDE SODIUM
     Route: 065
     Dates: start: 20160622
  20. ACETAMINOPHEN [Suspect]
     Active Substance: ACETAMINOPHEN
     Route: 065
     Dates: start: 20160616
  21. AMOXICILLIN\CLAVULANIC ACID [Suspect]
     Active Substance: AMOXICILLIN\CLAVULANIC ACID
     Dosage: 1 DF MORNING, NOON AND EVENING
     Route: 065
     Dates: start: 20160616
  22. PIROXICAM BETADEX [Suspect]
     Active Substance: PIROXICAM BETADEX
     Dosage: 1 TABLET/DIE
     Route: 065
     Dates: start: 20160722
  23. PIROXICAM BETADEX [Suspect]
     Active Substance: PIROXICAM BETADEX
     Dosage: 1 TABLET/DIE
     Route: 065
     Dates: start: 20160704
  24. AUGMENTIN [Suspect]
     Active Substance: AMOXICILLIN\CLAVULANATE POTASSIUM
     Dosage: SACHET 1 MORNING, 1 NOON AND 1 EVENING
     Route: 065
     Dates: start: 20160622
  25. KETOPROFEN [Suspect]
     Active Substance: KETOPROFEN
     Dosage: 2 CAPSULES/DIE
     Route: 065
     Dates: start: 20170104
  26. ACUPAN [Suspect]
     Active Substance: NEFOPAM HYDROCHLORIDE
     Dosage: 1 AMPOULE 3 TIMES A DAY
     Route: 065
     Dates: start: 20190520
  27. ACUPAN [Suspect]
     Active Substance: NEFOPAM HYDROCHLORIDE
     Dosage: 1 AMPOULE 3 TIMES A DAY AR 2 FOIS
     Route: 065
     Dates: start: 20181129
  28. ACUPAN [Suspect]
     Active Substance: NEFOPAM HYDROCHLORIDE
     Dosage: 1 AMPOULE 3 TIMES A DAY
     Route: 065
     Dates: start: 20190903
  29. ACUPAN [Suspect]
     Active Substance: NEFOPAM HYDROCHLORIDE
     Dosage: 1 AMPOULE 3 TIMES A DAY
     Route: 065
     Dates: start: 20200504
  30. ACUPAN [Suspect]
     Active Substance: NEFOPAM HYDROCHLORIDE
     Dosage: 1 AMPOULE 3 TIMES A DAY
     Route: 065
     Dates: start: 20180426
  31. ACUPAN [Suspect]
     Active Substance: NEFOPAM HYDROCHLORIDE
     Dosage: 1 AMPOULE 3 TIMES A DAY
     Route: 065
     Dates: start: 20170904
  32. ACUPAN [Suspect]
     Active Substance: NEFOPAM HYDROCHLORIDE
     Dosage: 1 AMPOULE 3 TIMES A DAY
     Route: 065
     Dates: start: 20180904
  33. ACUPAN [Suspect]
     Active Substance: NEFOPAM HYDROCHLORIDE
     Dosage: 1 AMPOULE 3 TIMES A DAY
     Route: 065
     Dates: start: 20180212
  34. ACUPAN [Suspect]
     Active Substance: NEFOPAM HYDROCHLORIDE
     Dosage: 1 AMPOULE 3 TIMES A DAY
     Route: 065
     Dates: start: 20180828
  35. ACUPAN [Suspect]
     Active Substance: NEFOPAM HYDROCHLORIDE
     Dosage: 1 AMPOULE 3X4 TIMES A DAY
     Route: 065
     Dates: start: 20200120
  36. ACUPAN [Suspect]
     Active Substance: NEFOPAM HYDROCHLORIDE
     Dosage: UNKNOWN DOSAGE 3 TIMES A DAY
     Route: 065
     Dates: start: 20180523
  37. ACUPAN [Suspect]
     Active Substance: NEFOPAM HYDROCHLORIDE
     Dosage: 1 AMPOULE 3 TIMES A DAY
     Route: 065
     Dates: start: 20200917
  38. ACUPAN [Suspect]
     Active Substance: NEFOPAM HYDROCHLORIDE
     Dosage: 1 AMPOULE 3 TIMES A DAY
     Route: 065
     Dates: start: 20190307
  39. ACUPAN [Suspect]
     Active Substance: NEFOPAM HYDROCHLORIDE
     Dosage: DOSAGE 3 TIMES A DAY
     Route: 065
     Dates: start: 20180109
  40. AMITRIPTYLINE HYDROCHLORIDE [Suspect]
     Active Substance: AMITRIPTYLINE HYDROCHLORIDE
     Dosage: 0.5 TABLET AT BEDTIME
     Route: 048
     Dates: start: 20170104
  41. AMITRIPTYLINE HYDROCHLORIDE [Suspect]
     Active Substance: AMITRIPTYLINE HYDROCHLORIDE
     Dosage: 1 TABLET AT BEDTIME
     Route: 048
     Dates: start: 20170111
  42. ACETAMINOPHEN\CODEINE PHOSPHATE [Suspect]
     Active Substance: ACETAMINOPHEN\CODEINE PHOSPHATE
     Dosage: NOT ASSOCIATE WITH DOLIPRANE
     Route: 065
     Dates: start: 20160622
  43. CYAMEMAZINE [Suspect]
     Active Substance: CYAMEMAZINE
     Dosage: 1 DOSAGE FORM AT BEDTIME
     Route: 065
     Dates: start: 20181129
  44. CYAMEMAZINE [Suspect]
     Active Substance: CYAMEMAZINE
     Dosage: 1 DOSAGE FORM IN THE EVENING
     Route: 065
     Dates: start: 20220121
  45. CYAMEMAZINE [Suspect]
     Active Substance: CYAMEMAZINE
     Dosage: 1 TABLET IN THE EVENING
     Route: 065
     Dates: start: 20190307
  46. CYAMEMAZINE [Suspect]
     Active Substance: CYAMEMAZINE
     Dosage: 1 DOSAGE FORM AT BEDTIME AR 2 FOIS
     Route: 065
     Dates: start: 20190829
  47. CYAMEMAZINE [Suspect]
     Active Substance: CYAMEMAZINE
     Dosage: 1 DOSAGE FORM AT BEDTIME AR 2 FOIS
     Route: 065
     Dates: start: 20190520
  48. CYAMEMAZINE [Suspect]
     Active Substance: CYAMEMAZINE
     Dosage: 1 DOSAGE FORM IN THE EVENING. ORDONNANCE A R 2/ FOIS.
     Route: 065
     Dates: start: 20210625
  49. CYAMEMAZINE [Suspect]
     Active Substance: CYAMEMAZINE
     Dosage: 0.5 TABLET AT BEDTIME
     Route: 065
     Dates: start: 20171017
  50. CYAMEMAZINE [Suspect]
     Active Substance: CYAMEMAZINE
     Dosage: UNKNOWN DOSAGE AT BEDTIME
     Route: 065
     Dates: start: 20180426
  51. CYAMEMAZINE [Suspect]
     Active Substance: CYAMEMAZINE
     Dosage: IN THE EVENING A R 3/FOIS
     Route: 065
     Dates: start: 20200619
  52. CYAMEMAZINE [Suspect]
     Active Substance: CYAMEMAZINE
     Dosage: IN THE EVENING
     Route: 065
     Dates: start: 20200504
  53. CYAMEMAZINE [Suspect]
     Active Substance: CYAMEMAZINE
     Dosage: 1 DOSAGE FORM AT BEDTIME
     Route: 065
     Dates: start: 20180523
  54. CYAMEMAZINE [Suspect]
     Active Substance: CYAMEMAZINE
     Dosage: 1 DOSAGE FORM IN THE EVENING
     Route: 065
     Dates: start: 20220408
  55. CYAMEMAZINE [Suspect]
     Active Substance: CYAMEMAZINE
     Dosage: 1 DOSAGE FORM AT BEDTIME
     Route: 065
     Dates: start: 20180615
  56. CYAMEMAZINE [Suspect]
     Active Substance: CYAMEMAZINE
     Dosage: IN THE EVENING
     Route: 065
     Dates: start: 20200120
  57. CYAMEMAZINE [Suspect]
     Active Substance: CYAMEMAZINE
     Dosage: AR 6 MOIS
     Route: 065
     Dates: start: 20190903
  58. CYAMEMAZINE [Suspect]
     Active Substance: CYAMEMAZINE
     Dosage: 1 TABLET IN THE EVENING
     Route: 065
     Dates: start: 20210917
  59. CYAMEMAZINE [Suspect]
     Active Substance: CYAMEMAZINE
     Dosage: IN THE EVENING
     Route: 065
     Dates: start: 20200417
  60. CYAMEMAZINE [Suspect]
     Active Substance: CYAMEMAZINE
     Dosage: 1 DOSAGE FORM AT BEDTIME AR 3 FOIS
     Route: 065
     Dates: start: 20190222
  61. CYAMEMAZINE [Suspect]
     Active Substance: CYAMEMAZINE
     Dosage: 1 DOSAGE FORM AT BEDTIME AR 3 FOIS
     Route: 065
     Dates: start: 20190222
  62. CYAMEMAZINE [Suspect]
     Active Substance: CYAMEMAZINE
     Dosage: 1 DOSAGE FORM IN THE EVENING
     Route: 065
     Dates: start: 20220201
  63. CYAMEMAZINE [Suspect]
     Active Substance: CYAMEMAZINE
     Dosage: 1 DOSAGE FORM IN THE EVENING AR 1 FOIS
     Route: 065
     Dates: start: 20191121
  64. CYAMEMAZINE [Suspect]
     Active Substance: CYAMEMAZINE
     Dosage: 1 DOSAGE FORM IN THE EVENING
     Route: 065
     Dates: start: 20210930
  65. CYAMEMAZINE [Suspect]
     Active Substance: CYAMEMAZINE
     Dosage: 1 DOSAGE FORM AT BEDTIME
     Route: 065
     Dates: start: 20180212
  66. CYAMEMAZINE [Suspect]
     Active Substance: CYAMEMAZINE
     Dosage: UNKNOWN DOSAGE IN THE EVENING
     Route: 065
     Dates: start: 20180116
  67. CYAMEMAZINE [Suspect]
     Active Substance: CYAMEMAZINE
     Dosage: 1 DOSAGE FORM AT BEDTIME
     Route: 065
     Dates: start: 20180904
  68. CYAMEMAZINE [Suspect]
     Active Substance: CYAMEMAZINE
     Dosage: 1 TABLET IN THE EVENING
     Route: 065
     Dates: start: 20201228
  69. CYAMEMAZINE [Suspect]
     Active Substance: CYAMEMAZINE
     Dosage: 1 TABLET IN THE EVENING
     Route: 065
     Dates: start: 20180828
  70. CYAMEMAZINE [Suspect]
     Active Substance: CYAMEMAZINE
     Dosage: 1 TABLET AT BEDTIME
     Route: 065
     Dates: start: 20180109
  71. CYAMEMAZINE [Suspect]
     Active Substance: CYAMEMAZINE
     Dosage: 1 TABLET IN THE EVENING
     Route: 065
     Dates: start: 20200917
  72. CYMBALTA [Suspect]
     Active Substance: DULOXETINE HYDROCHLORIDE
     Dosage: 2 DOSAGE FORMS IN THE MORNING
     Route: 065
     Dates: start: 20180420
  73. CYMBALTA [Suspect]
     Active Substance: DULOXETINE HYDROCHLORIDE
     Dosage: 2 DOSAGE FORM IN THE MORNING
     Route: 065
     Dates: start: 20210625
  74. CYMBALTA [Suspect]
     Active Substance: DULOXETINE HYDROCHLORIDE
     Dosage: 2 DOSAGE FORMS IN THE MORNING
     Route: 065
     Dates: start: 20180116
  75. CYMBALTA [Suspect]
     Active Substance: DULOXETINE HYDROCHLORIDE
     Dosage: 2 CAPSULES
     Route: 065
     Dates: start: 20190520
  76. CYMBALTA [Suspect]
     Active Substance: DULOXETINE HYDROCHLORIDE
     Dosage: 2 DOSAGE FORMS IN THE MORNING
     Route: 065
     Dates: start: 20180220
  77. CYMBALTA [Suspect]
     Active Substance: DULOXETINE HYDROCHLORIDE
     Dosage: 1 CAPSULE IN THE MORNING AND 1 IN THE EVENING
     Route: 065
     Dates: start: 20220201
  78. CYMBALTA [Suspect]
     Active Substance: DULOXETINE HYDROCHLORIDE
     Dosage: 2 CAPSULES IN THE MORNING
     Route: 065
     Dates: start: 20180904
  79. CYMBALTA [Suspect]
     Active Substance: DULOXETINE HYDROCHLORIDE
     Dosage: 2 DOSAGE FORMS IN THE MORNING
     Route: 065
     Dates: start: 20190829
  80. CYMBALTA [Suspect]
     Active Substance: DULOXETINE HYDROCHLORIDE
     Dosage: 1 TABLET IN THE MORNING
     Route: 065
     Dates: start: 20170904
  81. CYMBALTA [Suspect]
     Active Substance: DULOXETINE HYDROCHLORIDE
     Route: 065
     Dates: start: 20200417
  82. CYMBALTA [Suspect]
     Active Substance: DULOXETINE HYDROCHLORIDE
     Dosage: 2 CAPSULES
     Route: 065
     Dates: start: 20190307
  83. CYMBALTA [Suspect]
     Active Substance: DULOXETINE HYDROCHLORIDE
     Dosage: 2 DOSAGE FORMS IN THE EVENING
     Route: 065
     Dates: start: 20190222
  84. CYMBALTA [Suspect]
     Active Substance: DULOXETINE HYDROCHLORIDE
     Dosage: 1 TABLET IN THE EVENING
     Route: 065
     Dates: start: 20170522
  85. CYMBALTA [Suspect]
     Active Substance: DULOXETINE HYDROCHLORIDE
     Dosage: 1 DOSAGE FORM IN THE MORNING AND 1 IN THE EVENING
     Route: 065
     Dates: start: 20200120
  86. CYMBALTA [Suspect]
     Active Substance: DULOXETINE HYDROCHLORIDE
     Dosage: 2 CAPSULES IN THE MORNING
     Route: 065
     Dates: start: 20180212
  87. CYMBALTA [Suspect]
     Active Substance: DULOXETINE HYDROCHLORIDE
     Dosage: 1 TABLET IN THE MORNING
     Route: 065
     Dates: start: 20170810
  88. CYMBALTA [Suspect]
     Active Substance: DULOXETINE HYDROCHLORIDE
     Dosage: 2 CAPSULES IN THE MORNING
     Route: 065
     Dates: start: 20180109
  89. CYMBALTA [Suspect]
     Active Substance: DULOXETINE HYDROCHLORIDE
     Dosage: 2 CAPSULES IN THE EVENING
     Route: 065
     Dates: start: 20180523
  90. CYMBALTA [Suspect]
     Active Substance: DULOXETINE HYDROCHLORIDE
     Dosage: 2 DOSAGE FORMS IN THE MORNING
     Route: 065
     Dates: start: 20190903
  91. CYMBALTA [Suspect]
     Active Substance: DULOXETINE HYDROCHLORIDE
     Dosage: 2 CAPSULES IN THE EVENING
     Route: 065
     Dates: start: 20180426
  92. CYMBALTA [Suspect]
     Active Substance: DULOXETINE HYDROCHLORIDE
     Dosage: 2 DOSAGE FORMS IN THE MORNING AND 2 IN THE EVENING
     Route: 065
     Dates: start: 20220408
  93. CYMBALTA [Suspect]
     Active Substance: DULOXETINE HYDROCHLORIDE
     Dosage: 2 CAPSULES IN THE MORNING
     Route: 065
     Dates: start: 20180615
  94. CYMBALTA [Suspect]
     Active Substance: DULOXETINE HYDROCHLORIDE
     Dosage: 1 DOSAGE FORM IN THE MORNING AND 1 IN THE EVENING
     Route: 065
     Dates: start: 20200917
  95. CYMBALTA [Suspect]
     Active Substance: DULOXETINE HYDROCHLORIDE
     Dosage: 2 CAPSULES IN THE EVENING
     Route: 065
     Dates: start: 20180828
  96. CYMBALTA [Suspect]
     Active Substance: DULOXETINE HYDROCHLORIDE
     Dosage: 1 CAPSULE IN THE MORNING AND 1 IN THE EVENING
     Route: 065
     Dates: start: 20210917
  97. CYMBALTA [Suspect]
     Active Substance: DULOXETINE HYDROCHLORIDE
     Dosage: 2 DOSAGE FORMS IN THE MORNING
     Route: 065
     Dates: start: 20191121
  98. CYMBALTA [Suspect]
     Active Substance: DULOXETINE HYDROCHLORIDE
     Route: 065
     Dates: start: 20200619
  99. CYMBALTA [Suspect]
     Active Substance: DULOXETINE HYDROCHLORIDE
     Dosage: 1 DOSAGE FORM IN THE MORNING AND 1 IN THE EVENING
     Route: 065
     Dates: start: 20210930
  100. CYMBALTA [Suspect]
     Active Substance: DULOXETINE HYDROCHLORIDE
     Dosage: 1 TABLET IN THE MORNING
     Route: 065
     Dates: start: 20171017
  101. CYMBALTA [Suspect]
     Active Substance: DULOXETINE HYDROCHLORIDE
     Dosage: 2 CAPSULES IN THE MORNING
     Route: 065
     Dates: start: 20181129
  102. CYMBALTA [Suspect]
     Active Substance: DULOXETINE HYDROCHLORIDE
     Route: 065
     Dates: start: 20200504
  103. CYMBALTA [Suspect]
     Active Substance: DULOXETINE HYDROCHLORIDE
     Dosage: 1 DOSAGE FORM IN THE MORNING AND 1 IN THE EVENING
     Route: 065
     Dates: start: 20210121
  104. CYMBALTA [Suspect]
     Active Substance: DULOXETINE HYDROCHLORIDE
     Dosage: 1 CAPSULE IN THE MORNING AND 1 IN THE EVENING
     Route: 065
     Dates: start: 20210421
  105. CYMBALTA [Suspect]
     Active Substance: DULOXETINE HYDROCHLORIDE
     Dosage: 2 DOSAGE FORMS IN THE MORNING
     Route: 065
     Dates: start: 20190222
  106. CYMBALTA [Suspect]
     Active Substance: DULOXETINE HYDROCHLORIDE
     Dosage: 1 DOSAGE FORM IN THE MORNING AND 1 IN THE EVENING
     Route: 065
     Dates: start: 20201228
  107. AMITRIPTYLINE HYDROCHLORIDE [Suspect]
     Active Substance: AMITRIPTYLINE HYDROCHLORIDE
     Dosage: 30 DROPS IN THE EVENING
     Route: 065
     Dates: start: 20210930
  108. AMITRIPTYLINE HYDROCHLORIDE [Suspect]
     Active Substance: AMITRIPTYLINE HYDROCHLORIDE
     Dosage: 30 DROPS IN THE EVENING
     Route: 065
     Dates: start: 20220201
  109. AMITRIPTYLINE HYDROCHLORIDE [Suspect]
     Active Substance: AMITRIPTYLINE HYDROCHLORIDE
     Route: 065
     Dates: start: 20200818
  110. AMITRIPTYLINE HYDROCHLORIDE [Suspect]
     Active Substance: AMITRIPTYLINE HYDROCHLORIDE
     Dosage: 30 DROPS IN THE EVENING
     Route: 065
     Dates: start: 20201228
  111. AMITRIPTYLINE HYDROCHLORIDE [Suspect]
     Active Substance: AMITRIPTYLINE HYDROCHLORIDE
     Dosage: 30 DROPS AT BEDTIME
     Route: 065
     Dates: start: 20220408
  112. AMITRIPTYLINE HYDROCHLORIDE [Suspect]
     Active Substance: AMITRIPTYLINE HYDROCHLORIDE
     Dosage: 30 DROPS IN THE EVENING
     Route: 065
     Dates: start: 20210917
  113. TRAMADOL [Suspect]
     Active Substance: TRAMADOL
     Dosage: 1 CAPSULE/DIE
     Route: 065
     Dates: start: 20160616
  114. AMITRIPTYLINE HYDROCHLORIDE [Suspect]
     Active Substance: AMITRIPTYLINE HYDROCHLORIDE
     Dosage: 1 TABLET AT BEDTIME
     Route: 065
     Dates: start: 20170330
  115. AMITRIPTYLINE HYDROCHLORIDE [Suspect]
     Active Substance: AMITRIPTYLINE HYDROCHLORIDE
     Dosage: 1 TABLET AT BEDTIME
     Route: 065
     Dates: start: 20170320
  116. AMITRIPTYLINE HYDROCHLORIDE [Suspect]
     Active Substance: AMITRIPTYLINE HYDROCHLORIDE
     Route: 065
     Dates: start: 2017
  117. AMITRIPTYLINE HYDROCHLORIDE [Suspect]
     Active Substance: AMITRIPTYLINE HYDROCHLORIDE
     Dosage: 75 MG IN THE EVENING
     Route: 065
     Dates: start: 20170502
  118. AMITRIPTYLINE HYDROCHLORIDE [Suspect]
     Active Substance: AMITRIPTYLINE HYDROCHLORIDE
     Dosage: 75 MG IN THE EVENING
     Route: 065
     Dates: start: 20170904
  119. AMITRIPTYLINE HYDROCHLORIDE [Suspect]
     Active Substance: AMITRIPTYLINE HYDROCHLORIDE
     Dosage: 2 DOSAGE FORMS AT BEDTIME
     Route: 065
     Dates: start: 20180220
  120. CYMBALTA [Suspect]
     Active Substance: DULOXETINE HYDROCHLORIDE
     Dosage: 1 TABLET/DIE
     Route: 065
     Dates: start: 20170418
  121. ZOPICLONE [Suspect]
     Active Substance: ZOPICLONE
     Dosage: 1 DOSAGE FORM BEFORE BEDTIME. A R 2/FOIS
     Route: 065
     Dates: start: 20220121
  122. ZOPICLONE [Suspect]
     Active Substance: ZOPICLONE
     Dosage: 1 TABLET BEFORE BEDTIME. A RENOUVELER 6/MOIS
     Route: 065
     Dates: start: 20201228
  123. ZOPICLONE [Suspect]
     Active Substance: ZOPICLONE
     Dosage: 1 TABLET BEFORE BEDTIME
     Route: 065
     Dates: start: 20220110
  124. ZOPICLONE [Suspect]
     Active Substance: ZOPICLONE
     Dosage: 1 DOSAGE FORM BEFORE BEDTIME. A RENOUVELER 2/FOIS
     Route: 065
     Dates: start: 20220408
  125. ZOPICLONE [Suspect]
     Active Substance: ZOPICLONE
     Dosage: 1 DOSAGE FORM BEFORE BEDTIME. A R 3/FOIS
     Route: 065
     Dates: start: 20210930
  126. TRAMADOL HYDROCHLORIDE [Suspect]
     Active Substance: TRAMADOL HYDROCHLORIDE
     Dosage: 1 CP MORNING, NOON AND EVENING
     Route: 065
     Dates: start: 20160722
  127. TRAMADOL HYDROCHLORIDE [Suspect]
     Active Substance: TRAMADOL HYDROCHLORIDE
     Dosage: 1 CP MORNING, NOON AND EVENING
     Route: 065
     Dates: start: 20161004
  128. TRAMADOL HYDROCHLORIDE [Suspect]
     Active Substance: TRAMADOL HYDROCHLORIDE
     Dosage: 1 CP MORNING, NOON AND EVENING
     Route: 065
     Dates: start: 20160704
  129. TRAMADOL HYDROCHLORIDE [Suspect]
     Active Substance: TRAMADOL HYDROCHLORIDE
     Dosage: 1 CP MORNING AND EVENING
     Route: 065
     Dates: start: 20170529
  130. TRAMADOL HYDROCHLORIDE [Suspect]
     Active Substance: TRAMADOL HYDROCHLORIDE
     Dosage: 1 CP MORNING, NOON AND EVENING
     Route: 065
     Dates: start: 20160818
  131. INDOMETHACIN [Suspect]
     Active Substance: INDOMETHACIN
     Dosage: 2 CAPSULES/DIE
     Route: 065
     Dates: start: 20170330
  132. PREDNISOLONE SODIUM METAZOATE [Suspect]
     Active Substance: PREDNISOLONE SODIUM METAZOATE
     Dosage: 4.0DF UNKNOWN
     Route: 065
     Dates: start: 20160617

REACTIONS (3)
  - Depression [Not Recovered/Not Resolved]
  - Diffuse axonal injury [Not Recovered/Not Resolved]
  - Amyotrophy [Not Recovered/Not Resolved]
